FAERS Safety Report 6812912-X (Version None)
Quarter: 2010Q3

REPORT INFORMATION
  Report Type: 
  Country: None (occurrence: None)
  Receive Date: 20100701
  Receipt Date: 20100621
  Transmission Date: 20110219
  Serious: Yes (Hospitalization)
  Sender: FDA-Public Use
  Company Number: US-MYLANLABS-2010S1010994

PATIENT
  Age: 24 Year
  Sex: Female

DRUGS (3)
  1. THIAMAZOLE [Suspect]
     Indication: BASEDOW'S DISEASE
  2. PROPYLTHIOURACIL [Suspect]
     Dosage: LOW DOSE
     Dates: end: 20071101
  3. ATENOLOL [Concomitant]

REACTIONS (1)
  - MYOSITIS [None]
